FAERS Safety Report 8505032-X (Version None)
Quarter: 2012Q3

REPORT INFORMATION
  Report Type: 
  Country: None (occurrence: None)
  Receive Date: 20120712
  Receipt Date: 20120628
  Transmission Date: 20120928
  Serious: Yes (Other)
  Sender: FDA-Public Use
  Company Number: CO-AMGEN-COLSP2012041871

PATIENT
  Age: 67 Year
  Sex: Female

DRUGS (5)
  1. LOSARTAN POTASSIUM [Concomitant]
     Indication: HYPERTENSION
     Dosage: 15 MG, 2X/DAY
     Route: 048
  2. ACETAMINOPHEN [Concomitant]
     Dosage: UNK
  3. OMEPRAZOLE [Concomitant]
     Dosage: UNK
  4. ENBREL [Suspect]
     Indication: RHEUMATOID ARTHRITIS
     Dosage: 50 MG, WEEKLY
     Route: 058
     Dates: start: 20120101
  5. FUROSEMIDE [Concomitant]
     Indication: HYPERTENSION
     Dosage: UNK
     Route: 048

REACTIONS (6)
  - MUSCULOSKELETAL PAIN [None]
  - HEADACHE [None]
  - SPINAL FRACTURE [None]
  - ARTHRALGIA [None]
  - PAIN IN EXTREMITY [None]
  - SPINAL PAIN [None]
